FAERS Safety Report 9053919 (Version 1)
Quarter: 2013Q1

REPORT INFORMATION
  Report Type: Spontaneous
  Country: US (occurrence: None)
  Receive Date: 20130201
  Receipt Date: 20130201
  Transmission Date: 20140127
  Serious: No
  Sender: FDA-Public Use
  Company Number: None

PATIENT
  Age: 78 Year
  Sex: Female
  Weight: 53.52 kg

DRUGS (1)
  1. PROLIA (DENOSUMAB) [Suspect]
     Indication: OSTEOPOROSIS
     Route: 058
     Dates: start: 20121214

REACTIONS (12)
  - Gait disturbance [None]
  - Myalgia [None]
  - Nausea [None]
  - Vomiting [None]
  - Oropharyngeal pain [None]
  - Cough [None]
  - Pain in jaw [None]
  - Pollakiuria [None]
  - Hypersomnia [None]
  - Visual impairment [None]
  - Pain in extremity [None]
  - Groin pain [None]
